FAERS Safety Report 18533460 (Version 2)
Quarter: 2021Q3

REPORT INFORMATION
  Report Type: Other
  Country: GB (occurrence: GB)
  Receive Date: 20201123
  Receipt Date: 20210716
  Transmission Date: 20211014
  Serious: Yes (Other)
  Sender: FDA-Public Use
  Company Number: GB-STRIDES ARCOLAB LIMITED-2020SP014331

PATIENT
  Age: 58 Year
  Sex: Male

DRUGS (8)
  1. SERTRALINE [Concomitant]
     Active Substance: SERTRALINE HYDROCHLORIDE
     Indication: DEPRESSION
     Dosage: UNK
     Route: 048
  2. VESOMNI [Concomitant]
     Active Substance: SOLIFENACIN\TAMSULOSIN
     Indication: MICTURITION DISORDER
     Dosage: UNK
     Route: 065
  3. LUPRON DEPOT [Concomitant]
     Active Substance: LEUPROLIDE ACETATE
     Indication: HORMONE THERAPY
     Dosage: 13.5 MILLIGRAM
     Route: 058
  4. LISINOPRIL. [Concomitant]
     Active Substance: LISINOPRIL
     Indication: HYPERTENSION
     Dosage: UNK
     Route: 048
  5. PREDNISOLONE. [Suspect]
     Active Substance: PREDNISOLONE
     Dosage: 10 MILLIGRAM, TABLET
     Route: 048
     Dates: start: 20200530
  6. ABIRATERONE ACETATE. [Suspect]
     Active Substance: ABIRATERONE ACETATE
     Indication: PROSTATE CANCER
     Dosage: 1000 MILLIGRAM, QD
     Route: 048
     Dates: start: 20200530
  7. AMLODIPINE [Concomitant]
     Active Substance: AMLODIPINE BESYLATE
     Indication: HYPERTENSION
     Dosage: UNK
     Route: 048
  8. PREDNISOLONE. [Suspect]
     Active Substance: PREDNISOLONE
     Indication: PROSTATE CANCER
     Dosage: 5 MILLIGRAM, QD TABLET
     Route: 048
     Dates: start: 20200530

REACTIONS (3)
  - Fatigue [Not Recovered/Not Resolved]
  - Blood potassium abnormal [Not Recovered/Not Resolved]
  - Asthenia [Unknown]

NARRATIVE: CASE EVENT DATE: 20201102
